FAERS Safety Report 4807784-9 (Version None)
Quarter: 2005Q4

REPORT INFORMATION
  Report Type: 
  Country: None (occurrence: None)
  Receive Date: 20051021
  Receipt Date: 20040706
  Transmission Date: 20060501
  Serious: No
  Sender: FDA-Public Use
  Company Number: US_010768726

PATIENT
  Age: 67 Year
  Sex: Female
  Weight: 96 kg

DRUGS (2)
  1. ZYPREXA [Suspect]
     Indication: SCHIZOPHRENIA
     Dosage: 5 MG/4 DAY
     Dates: start: 20000101
  2. ZOLOFT [Concomitant]

REACTIONS (5)
  - BENIGN BREAST NEOPLASM [None]
  - RECTAL HAEMORRHAGE [None]
  - RECTAL LESION [None]
  - REFUSAL OF TREATMENT BY PATIENT [None]
  - TREATMENT NONCOMPLIANCE [None]
